FAERS Safety Report 11092376 (Version 1)
Quarter: 2015Q2

REPORT INFORMATION
  Report Type: Spontaneous
  Country: US (occurrence: US)
  Receive Date: 20150506
  Receipt Date: 20150506
  Transmission Date: 20150821
  Serious: Yes (Other)
  Sender: FDA-Public Use
  Company Number: US-ROCHE-1572910

PATIENT
  Sex: Female

DRUGS (2)
  1. HERCEPTIN [Suspect]
     Active Substance: TRASTUZUMAB
     Indication: BREAST CANCER METASTATIC
     Route: 065
  2. LAPATINIB [Suspect]
     Active Substance: LAPATINIB
     Indication: BREAST CANCER METASTATIC
     Route: 065

REACTIONS (1)
  - Glioblastoma [Unknown]
